FAERS Safety Report 4676609-7 (Version None)
Quarter: 2005Q2

REPORT INFORMATION
  Report Type: 
  Country: None (occurrence: None)
  Receive Date: 20050526
  Receipt Date: 20050310
  Transmission Date: 20051028
  Serious: Yes (Hospitalization)
  Sender: FDA-Public Use
  Company Number: 10453

PATIENT
  Age: 70 Year
  Sex: Male
  Weight: 78 kg

DRUGS (3)
  1. CYTARABINE [Suspect]
     Indication: ACUTE MYELOID LEUKAEMIA
     Dosage: 100  MG/M2 OTH IV
     Route: 042
     Dates: start: 20050205
  2. DAUNORUBICIN HCL [Suspect]
     Indication: ACUTE MYELOID LEUKAEMIA
     Dosage: 45 MG/M2 OTH IV
     Route: 042
     Dates: start: 20050205
  3. PLACEBO [Suspect]
     Indication: ACUTE MYELOID LEUKAEMIA
     Dosage: 550 MG/M2 OTH IV
     Route: 042
     Dates: start: 20050205

REACTIONS (4)
  - APLASIA [None]
  - FEBRILE NEUTROPENIA [None]
  - ORAL MUCOSAL PETECHIAE [None]
  - PHARYNGOLARYNGEAL PAIN [None]
